FAERS Safety Report 4927365-6 (Version None)
Quarter: 2006Q1

REPORT INFORMATION
  Report Type: 
  Country: None (occurrence: None)
  Receive Date: 20060228
  Receipt Date: 20050928
  Transmission Date: 20060701
  Serious: No
  Sender: FDA-Public Use
  Company Number: US-GLAXOSMITHKLINE-A0576238A

PATIENT
  Age: 45 Year
  Sex: Female

DRUGS (5)
  1. IMITREX [Suspect]
     Indication: MIGRAINE
     Dosage: 1INJ SINGLE DOSE
     Route: 058
     Dates: start: 20050918
  2. SEROQUEL [Concomitant]
  3. LAMICTAL [Concomitant]
  4. PAROXETINE HCL [Concomitant]
  5. PREVACID [Concomitant]

REACTIONS (1)
  - ALCOHOLISM [None]
